FAERS Safety Report 5898047-1 (Version None)
Quarter: 2008Q3

REPORT INFORMATION
  Report Type: 
  Country: None (occurrence: None)
  Receive Date: 20080925
  Receipt Date: 20080915
  Transmission Date: 20090109
  Serious: Yes (Hospitalization, Other)
  Sender: FDA-Public Use
  Company Number: US-ROCHE-575990

PATIENT
  Sex: Female
  Weight: 72.6 kg

DRUGS (6)
  1. BONIVA [Suspect]
     Indication: BONE DISORDER
     Dosage: FORM REPORTED AS: PREFILLED SYRINGE
     Route: 042
     Dates: start: 20080624, end: 20080627
  2. ULTRAM [Concomitant]
     Dosage: FREQUENCY:EVERY 8 HOUR PRN
     Route: 048
     Dates: start: 20080606
  3. FLEXERIL [Concomitant]
     Dosage: FRQUENCY: EVERY 8 HOUR, PRN
     Route: 048
  4. XANAX [Concomitant]
     Dosage: FREQUENCY: EVERY 8 HOUR, PRN
     Route: 048
  5. ESTROGENIC SUBSTANCE [Concomitant]
     Route: 062
  6. EFFEXOR [Concomitant]
     Dosage: DRUG REPORTED: EFFEXOR XR
     Route: 048

REACTIONS (8)
  - ANXIETY [None]
  - BONE PAIN [None]
  - CHEST PAIN [None]
  - DYSPNOEA [None]
  - INFLUENZA LIKE ILLNESS [None]
  - MUSCLE DISORDER [None]
  - MYALGIA [None]
  - MYOCARDIAL INFARCTION [None]
